FAERS Safety Report 8884278 (Version 1)
Quarter: 2012Q4

REPORT INFORMATION
  Report Type: 
  Country: US (occurrence: US)
  Receive Date: 20121104
  Receipt Date: 20121104
  Transmission Date: 20130627
  Serious: No
  Sender: FDA-Public Use
  Company Number: US-ASTRAZENECA-2012SE79427

PATIENT
  Age: 72 Year
  Sex: Female
  Weight: 88.5 kg

DRUGS (7)
  1. TENORMIN [Suspect]
     Indication: HYPERTENSION
     Dosage: GENERIC
     Route: 048
     Dates: start: 1992
  2. TENORMIN [Suspect]
     Indication: HEART RATE INCREASED
     Dosage: GENERIC
     Route: 048
     Dates: start: 1992
  3. TENORMIN [Suspect]
     Indication: HYPERTENSION
     Dosage: GENERIC
     Route: 048
     Dates: end: 201208
  4. TENORMIN [Suspect]
     Indication: HEART RATE INCREASED
     Dosage: GENERIC
     Route: 048
     Dates: end: 201208
  5. TENORMIN [Suspect]
     Indication: HYPERTENSION
     Route: 048
     Dates: start: 201208
  6. TENORMIN [Suspect]
     Indication: HEART RATE INCREASED
     Route: 048
     Dates: start: 201208
  7. ALPRAZALONE [Concomitant]
     Indication: SLEEP DISORDER

REACTIONS (9)
  - Palpitations [Unknown]
  - Hypertension [Unknown]
  - Sleep disorder [Unknown]
  - Abnormal dreams [Unknown]
  - Head discomfort [Unknown]
  - Alopecia [Unknown]
  - Dizziness [Unknown]
  - Insomnia [Unknown]
  - Drug ineffective [Unknown]
